FAERS Safety Report 14355579 (Version 8)
Quarter: 2018Q1

REPORT INFORMATION
  Report Type: Report from Study
  Country: US (occurrence: US)
  Receive Date: 20180105
  Receipt Date: 20180330
  Transmission Date: 20180509
  Serious: Yes (Life-Threatening, Hospitalization)
  Sender: FDA-Public Use
  Company Number: US-PFIZER INC-2018000024

PATIENT
  Age: 61 Year
  Sex: Female
  Weight: 112 kg

DRUGS (12)
  1. PEMBROLIZUMAB. [Suspect]
     Active Substance: PEMBROLIZUMAB
     Dosage: 200 MG, EVERY 3 WEEKS (CYCLE 17)
     Route: 042
     Dates: start: 20171207, end: 20171207
  2. MOTRIN [Concomitant]
     Active Substance: IBUPROFEN
     Dosage: 2 DF, UNK
     Dates: start: 20170311
  3. PANTOPRAZOLE [Concomitant]
     Active Substance: PANTOPRAZOLE
     Dosage: 60 MG, UNK
     Dates: start: 200901
  4. AXITINIB [Suspect]
     Active Substance: AXITINIB
     Indication: RENAL CELL CARCINOMA
     Dosage: 5 MG, 2X/DAY
     Route: 048
     Dates: start: 20161201, end: 20171221
  5. AXITINIB [Suspect]
     Active Substance: AXITINIB
     Dosage: 3 MG, SINGLE
     Route: 048
     Dates: start: 20171222, end: 20171222
  6. IMODIUM [Concomitant]
     Active Substance: LOPERAMIDE HYDROCHLORIDE
     Dosage: 1 DF, UNK
     Dates: start: 20170223
  7. LEVOTHYROXINE SODIUM. [Concomitant]
     Active Substance: LEVOTHYROXINE SODIUM
     Dosage: 50 UG, UNK
     Dates: start: 199301
  8. EMLA [Concomitant]
     Active Substance: LIDOCAINE\PRILOCAINE
     Dosage: 1 DF, UNK
     Dates: start: 20161222
  9. MOTRIN [Concomitant]
     Active Substance: IBUPROFEN
     Dosage: 2 DF, UNK
     Dates: start: 20170317
  10. PEMBROLIZUMAB. [Suspect]
     Active Substance: PEMBROLIZUMAB
     Indication: RENAL CELL CARCINOMA
     Dosage: 200 MG, EVERY 3 WEEKS (Q3W) (VOLUME OF INFUSION: 100 ML)
     Route: 042
     Dates: start: 20161201, end: 20171116
  11. ATENOLOL AND CHLORTHALIDONE [Concomitant]
     Active Substance: ATENOLOL\CHLORTHALIDONE
     Dosage: 50 MG, UNK
     Dates: start: 201101
  12. ZOFRAN [Concomitant]
     Active Substance: ONDANSETRON HYDROCHLORIDE
     Dosage: 8 MG, UNK
     Dates: start: 20161222

REACTIONS (1)
  - Diabetic ketoacidosis [Recovered/Resolved with Sequelae]

NARRATIVE: CASE EVENT DATE: 20171225
